FAERS Safety Report 6694925-4 (Version None)
Quarter: 2010Q2

REPORT INFORMATION
  Report Type: 
  Country: None (occurrence: None)
  Receive Date: 20100423
  Receipt Date: 20100412
  Transmission Date: 20101027
  Serious: Yes (Hospitalization, Other)
  Sender: FDA-Public Use
  Company Number: BR-ELI_LILLY_AND_COMPANY-BR201002006507

PATIENT
  Age: 59 Year
  Sex: Female

DRUGS (8)
  1. CYMBALTA [Suspect]
     Indication: NEURITIS
     Dosage: 60 MG, DAILY (1/D)
     Route: 048
     Dates: start: 20100120, end: 20100101
  2. LOSARTAN POTASSIUM [Concomitant]
     Dosage: UNK, UNKNOWN
     Route: 065
  3. PROPRANOLOL [Concomitant]
     Dosage: UNK, UNKNOWN
     Route: 065
  4. AMLODIPINA /00972402/ [Concomitant]
     Dosage: UNK, UNKNOWN
     Route: 065
  5. CLORANA [Concomitant]
     Dosage: UNK, UNKNOWN
     Route: 065
  6. BUSCOPAN [Concomitant]
     Dosage: UNK, UNKNOWN
     Route: 065
  7. NIMESULIDA [Concomitant]
     Dosage: UNK, UNKNOWN
     Route: 065
  8. CELEBRA [Concomitant]
     Dosage: UNK, UNKNOWN
     Route: 065

REACTIONS (2)
  - HYPERSENSITIVITY [None]
  - OFF LABEL USE [None]
